FAERS Safety Report 11098319 (Version 1)
Quarter: 2015Q2

REPORT INFORMATION
  Report Type: Spontaneous
  Country: US (occurrence: US)
  Receive Date: 20150507
  Receipt Date: 20150507
  Transmission Date: 20150821
  Serious: No
  Sender: FDA-Public Use
  Company Number: US-TEVA-559921USA

PATIENT
  Age: 20 Year
  Sex: Male

DRUGS (1)
  1. CLARAVIS [Suspect]
     Active Substance: ISOTRETINOIN
     Route: 048
     Dates: start: 20141222, end: 20150429

REACTIONS (4)
  - Decreased interest [Unknown]
  - Hypersomnia [Unknown]
  - Fatigue [Unknown]
  - Depressive symptom [Unknown]

NARRATIVE: CASE EVENT DATE: 20150429
